FAERS Safety Report 21483369 (Version 1)
Quarter: 2022Q4

REPORT INFORMATION
  Report Type: Report from Study
  Country: US (occurrence: US)
  Receive Date: 20221020
  Receipt Date: 20221020
  Transmission Date: 20230113
  Serious: No
  Sender: FDA-Public Use
  Company Number: US-CELLTRION INC.-2022US002687

PATIENT

DRUGS (1)
  1. INFLECTRA [Suspect]
     Active Substance: INFLIXIMAB-DYYB
     Indication: Product used for unknown indication
     Dosage: 100 MG/KG, EVERY 8 WEEKS (3 VIALS)
     Route: 065
     Dates: start: 201902, end: 201903

REACTIONS (2)
  - Adverse drug reaction [Unknown]
  - Overdose [Unknown]

NARRATIVE: CASE EVENT DATE: 20190201
